FAERS Safety Report 5593202-2 (Version None)
Quarter: 2008Q1

REPORT INFORMATION
  Report Type: 
  Country: None (occurrence: None)
  Receive Date: 20080116
  Receipt Date: 20080109
  Transmission Date: 20080703
  Serious: Yes (Other)
  Sender: FDA-Public Use
  Company Number: US-BAYER-200712135BWH

PATIENT
  Age: 50 Year
  Sex: Male

DRUGS (1)
  1. AVELOX [Suspect]
     Indication: SINUSITIS
     Route: 048
     Dates: start: 20070601

REACTIONS (6)
  - ANAPHYLACTIC REACTION [None]
  - ERYTHEMA [None]
  - LIP SWELLING [None]
  - OEDEMA PERIPHERAL [None]
  - PRURITUS [None]
  - RASH [None]
